FAERS Safety Report 9723789 (Version 1)
Quarter: 2013Q4

REPORT INFORMATION
  Report Type: Spontaneous
  Country: US (occurrence: US)
  Receive Date: 20131202
  Receipt Date: 20131202
  Transmission Date: 20140711
  Serious: Yes (Other)
  Sender: FDA-Public Use
  Company Number: US-ELI_LILLY_AND_COMPANY-US201311006060

PATIENT
  Sex: 0

DRUGS (6)
  1. GEMCITABINE HYDROCHLORIDE [Suspect]
     Indication: NEOPLASM
     Dosage: 500 MG/M2, OTHER
     Route: 042
  2. OXALIPLATIN [Suspect]
     Indication: NEOPLASM
     Dosage: 50 MG/M2, OTHER
     Route: 042
  3. IRINOTECAN [Suspect]
     Indication: NEOPLASM
     Dosage: 120 MG/M2, OTHER
     Route: 042
  4. LEUCOVORIN [Suspect]
     Indication: NEOPLASM
     Dosage: 300 MG/M2, OTHER
     Route: 042
  5. FLUOROURACIL [Suspect]
     Indication: NEOPLASM
     Dosage: 400 MG/M2, OTHER
     Route: 042
  6. FLUOROURACIL [Suspect]
     Dosage: 1500 MG/M2, OTHER
     Route: 042

REACTIONS (2)
  - Neutropenia [Unknown]
  - Constipation [Unknown]
